FAERS Safety Report 16336730 (Version 3)
Quarter: 2020Q3

REPORT INFORMATION
  Report Type: Spontaneous
  Country: US (occurrence: US)
  Receive Date: 20190521
  Receipt Date: 20200921
  Transmission Date: 20201102
  Serious: Yes (Hospitalization, Other)
  Sender: FDA-Public Use
  Company Number: US-VERTEX PHARMACEUTICALS-2019-001895

PATIENT
  Age: 42 Year
  Sex: Male
  Weight: 79 kg

DRUGS (6)
  1. CAYSTON [Concomitant]
     Active Substance: AZTREONAM
  2. ALBUTEROL                          /00139501/ [Concomitant]
     Active Substance: ALBUTEROL
  3. KALYDECO [Suspect]
     Active Substance: IVACAFTOR
     Indication: CYSTIC FIBROSIS
     Dosage: 150 MG, BID
     Route: 048
     Dates: start: 20190209, end: 20190228
  4. SODIUM CHLORIDE. [Concomitant]
     Active Substance: SODIUM CHLORIDE
  5. PULMOZYME [Concomitant]
     Active Substance: DORNASE ALFA
  6. FLONASE                            /00908302/ [Concomitant]
     Active Substance: MOMETASONE FUROATE

REACTIONS (6)
  - Polyp [Recovered/Resolved]
  - Sinusitis [Recovered/Resolved]
  - Swelling face [Recovered/Resolved]
  - Large intestine polyp [Recovered/Resolved]
  - Nasal polyps [Recovered/Resolved]
  - Deformity of orbit [Unknown]

NARRATIVE: CASE EVENT DATE: 201902
